FAERS Safety Report 24085546 (Version 1)
Quarter: 2024Q3

REPORT INFORMATION
  Report Type: Spontaneous
  Country: FR (occurrence: FR)
  Receive Date: 20240712
  Receipt Date: 20240712
  Transmission Date: 20241017
  Serious: Yes (Other)
  Sender: SANDOZ
  Company Number: FR-SANDOZ-SDZ2024FR064373

PATIENT
  Age: 87 Year
  Sex: Female

DRUGS (1)
  1. FILGRASTIM [Suspect]
     Active Substance: FILGRASTIM
     Indication: Neoplasm malignant
     Dosage: TWO INJECTIONS A WEEK
     Route: 065
     Dates: start: 202403

REACTIONS (1)
  - Respiratory depression [Unknown]

NARRATIVE: CASE EVENT DATE: 20240301
